FAERS Safety Report 23429880 (Version 3)
Quarter: 2024Q1

REPORT INFORMATION
  Report Type: Report from Study
  Country: JP (occurrence: JP)
  Receive Date: 20240122
  Receipt Date: 20240212
  Transmission Date: 20240410
  Serious: Yes (Hospitalization, Other)
  Sender: FDA-Public Use
  Company Number: JP-SA-2024SA017048

PATIENT
  Age: 53 Year
  Sex: Male
  Weight: 57 kg

DRUGS (30)
  1. ISATUXIMAB [Suspect]
     Active Substance: ISATUXIMAB
     Indication: Plasma cell myeloma refractory
     Dosage: 10 MG/KG, QW
     Route: 041
     Dates: start: 20230814, end: 20230828
  2. ISATUXIMAB [Suspect]
     Active Substance: ISATUXIMAB
     Dosage: 10 MG/KG, QOW
     Route: 041
     Dates: start: 20230905, end: 20231114
  3. CARFILZOMIB [Concomitant]
     Active Substance: CARFILZOMIB
     Indication: Plasma cell myeloma refractory
     Dosage: DAILY DOSE: 20 MG/M2
     Route: 065
     Dates: start: 20230814, end: 20230815
  4. CARFILZOMIB [Concomitant]
     Active Substance: CARFILZOMIB
     Dosage: DAILY DOSE: 56 MG/M2
     Route: 065
     Dates: start: 20230821, end: 20230822
  5. CARFILZOMIB [Concomitant]
     Active Substance: CARFILZOMIB
     Dosage: DAILY DOSE: 56 MG/M2
     Route: 065
     Dates: start: 20230828, end: 20230829
  6. CARFILZOMIB [Concomitant]
     Active Substance: CARFILZOMIB
     Dosage: DAILY DOSE: 56 MG/M2
     Route: 065
     Dates: start: 20230919, end: 20230920
  7. CARFILZOMIB [Concomitant]
     Active Substance: CARFILZOMIB
     Dosage: DAILY DOSE: 56 MG/M2
     Route: 065
     Dates: start: 20230926, end: 20230927
  8. CARFILZOMIB [Concomitant]
     Active Substance: CARFILZOMIB
     Dosage: DAILY DOSE: 56 MG/M2
     Route: 065
     Dates: start: 20231003, end: 20231004
  9. CARFILZOMIB [Concomitant]
     Active Substance: CARFILZOMIB
     Dosage: DAILY DOSE: 56 MG/M2
     Route: 065
     Dates: start: 20231017, end: 20231018
  10. CARFILZOMIB [Concomitant]
     Active Substance: CARFILZOMIB
     Dosage: DAILY DOSE: 56 MG/M2
     Route: 065
     Dates: start: 20231024, end: 20231025
  11. CARFILZOMIB [Concomitant]
     Active Substance: CARFILZOMIB
     Dosage: DAILY DOSE: 56 MG/M2
     Route: 065
     Dates: start: 20231031, end: 20231101
  12. CARFILZOMIB [Concomitant]
     Active Substance: CARFILZOMIB
     Dosage: DAILY DOSE: 56 MG/M2
     Route: 065
     Dates: start: 20231114, end: 20231114
  13. CARFILZOMIB [Concomitant]
     Active Substance: CARFILZOMIB
     Dosage: DAILY DOSE: 56 MG/M2
     Route: 065
     Dates: start: 20231121, end: 20231121
  14. DEXAMETHASONE [Concomitant]
     Active Substance: DEXAMETHASONE
     Indication: Plasma cell myeloma refractory
     Dosage: DAILY DOSE: 20 MG
     Route: 065
     Dates: start: 20230814, end: 20230815
  15. DEXAMETHASONE [Concomitant]
     Active Substance: DEXAMETHASONE
     Dosage: DAILY DOSE: 20 MG
     Route: 065
     Dates: start: 20230821, end: 20230822
  16. DEXAMETHASONE [Concomitant]
     Active Substance: DEXAMETHASONE
     Dosage: DAILY DOSE: 20 MG
     Route: 065
     Dates: start: 20230828, end: 20230829
  17. DEXAMETHASONE [Concomitant]
     Active Substance: DEXAMETHASONE
     Dosage: DAILY DOSE: 20 MG
     Route: 065
     Dates: start: 20230904, end: 20230905
  18. DEXAMETHASONE [Concomitant]
     Active Substance: DEXAMETHASONE
     Dosage: DAILY DOSE: 20 MG
     Route: 065
     Dates: start: 20230919, end: 20230920
  19. DEXAMETHASONE [Concomitant]
     Active Substance: DEXAMETHASONE
     Dosage: DAILY DOSE: 20 MG
     Route: 065
     Dates: start: 20230926, end: 20230927
  20. DEXAMETHASONE [Concomitant]
     Active Substance: DEXAMETHASONE
     Dosage: DAILY DOSE: 20 MG
     Route: 065
     Dates: start: 20231003, end: 20231004
  21. DEXAMETHASONE [Concomitant]
     Active Substance: DEXAMETHASONE
     Dosage: DAILY DOSE: 20 MG
     Route: 065
     Dates: start: 20231017, end: 20231018
  22. DEXAMETHASONE [Concomitant]
     Active Substance: DEXAMETHASONE
     Dosage: DAILY DOSE: 20 MG
     Route: 065
     Dates: start: 20231024, end: 20231025
  23. DEXAMETHASONE [Concomitant]
     Active Substance: DEXAMETHASONE
     Dosage: DAILY DOSE: 20 MG
     Route: 065
     Dates: start: 20231031, end: 20231101
  24. DEXAMETHASONE [Concomitant]
     Active Substance: DEXAMETHASONE
     Dosage: DAILY DOSE: 20 MG
     Route: 065
     Dates: start: 20231114, end: 20231114
  25. DEXAMETHASONE [Concomitant]
     Active Substance: DEXAMETHASONE
     Dosage: DAILY DOSE: 20 MG
     Route: 065
     Dates: start: 20231121, end: 20231121
  26. ACYCLOVIR [Concomitant]
     Active Substance: ACYCLOVIR
     Indication: Infection prophylaxis
     Dosage: 200 MG/DAY
     Route: 048
     Dates: start: 2023
  27. POLARAMINE [Concomitant]
     Active Substance: DEXCHLORPHENIRAMINE MALEATE
     Indication: Prophylaxis
     Dosage: 5 MG, QW
     Route: 065
     Dates: start: 20230814, end: 20230828
  28. SOLU-MEDROL [Concomitant]
     Active Substance: METHYLPREDNISOLONE SODIUM SUCCINATE
     Indication: Prophylaxis
     Dosage: 125 MG/DAY
     Route: 065
     Dates: start: 20230814, end: 20230814
  29. CALONAL [Concomitant]
     Active Substance: ACETAMINOPHEN
     Indication: Prophylaxis
     Dosage: 400 MG, QW
     Route: 048
     Dates: start: 20230814, end: 20230828
  30. CALONAL [Concomitant]
     Active Substance: ACETAMINOPHEN
     Dosage: 400 MG/DAY
     Route: 048
     Dates: start: 20230905, end: 20230905

REACTIONS (3)
  - Pneumocystis jirovecii pneumonia [Recovered/Resolved]
  - Myelosuppression [Recovered/Resolved]
  - Condition aggravated [Recovered/Resolved]

NARRATIVE: CASE EVENT DATE: 20230816
